FAERS Safety Report 10408770 (Version 5)
Quarter: 2017Q1

REPORT INFORMATION
  Report Type: Report from Study
  Country: DE (occurrence: DE)
  Receive Date: 20140826
  Receipt Date: 20170316
  Transmission Date: 20170428
  Serious: Yes (Other)
  Sender: FDA-Public Use
  Company Number: DE-JNJFOC-20140818857

PATIENT
  Age: 32 Year
  Sex: Female
  Weight: 87.3 kg

DRUGS (6)
  1. ETORICOXIB [Concomitant]
     Active Substance: ETORICOXIB
     Route: 065
     Dates: start: 20140807, end: 20150420
  2. SIMPONI [Suspect]
     Active Substance: GOLIMUMAB
     Indication: ANKYLOSING SPONDYLITIS
     Route: 058
     Dates: start: 20140907
  3. EUTHYROX [Concomitant]
     Active Substance: LEVOTHYROXINE SODIUM
     Route: 065
     Dates: start: 20140314
  4. ARCOXIA [Concomitant]
     Active Substance: ETORICOXIB
     Indication: ANKYLOSING SPONDYLITIS
     Route: 048
     Dates: start: 20140807
  5. SIMPONI [Suspect]
     Active Substance: GOLIMUMAB
     Indication: ANKYLOSING SPONDYLITIS
     Route: 058
     Dates: start: 20140514, end: 20140613
  6. ARCOXIA [Concomitant]
     Active Substance: ETORICOXIB
     Indication: ANKYLOSING SPONDYLITIS
     Route: 048
     Dates: start: 201405

REACTIONS (3)
  - Menorrhagia [Unknown]
  - Dizziness [Recovering/Resolving]
  - Folliculitis [Recovered/Resolved]

NARRATIVE: CASE EVENT DATE: 20140514
